FAERS Safety Report 10420182 (Version 1)
Quarter: 2014Q3

REPORT INFORMATION
  Report Type: Report from Study
  Country: US (occurrence: None)
  Receive Date: 20140804
  Receipt Date: 20140804
  Transmission Date: 20150326
  Serious: Yes (Other)
  Sender: FDA-Public Use
  Company Number: 2013US008713

PATIENT
  Age: 75 Year
  Sex: Female
  Weight: 44 kg

DRUGS (3)
  1. GLASSIA [Suspect]
     Active Substance: .ALPHA.1-PROTEINASE INHIBITOR HUMAN
     Indication: ALPHA-1 ANTI-TRYPSIN DEFICIENCY
     Dosage: 2808 MG, Q2WEEKS
     Route: 042
     Dates: start: 20101209
  2. OXYGEN (OXYGEN) [Concomitant]
     Active Substance: OXYGEN
  3. PREDNISONE (PREDNISONE) [Concomitant]
     Active Substance: PREDNISONE

REACTIONS (2)
  - Dyspnoea [None]
  - Herpes zoster [None]

NARRATIVE: CASE EVENT DATE: 201302
